FAERS Safety Report 13443517 (Version 1)
Quarter: 2017Q2

REPORT INFORMATION
  Report Type: Report from Study
  Country: GB (occurrence: GB)
  Receive Date: 20170414
  Receipt Date: 20170414
  Transmission Date: 20170830
  Serious: Yes (Hospitalization)
  Sender: FDA-Public Use
  Company Number: GB-AMGEN-GBRCT2010009725

PATIENT
  Age: 28 Year
  Sex: Female
  Weight: 103 kg

DRUGS (1)
  1. ETANERCEPT [Suspect]
     Active Substance: ETANERCEPT
     Indication: PSORIASIS
     Dosage: 25 MG, 2 TIMES/WK
     Route: 058
     Dates: start: 20090902

REACTIONS (3)
  - Gait disturbance [Unknown]
  - Idiopathic intracranial hypertension [Unknown]
  - Papilloedema [Unknown]

NARRATIVE: CASE EVENT DATE: 20091012
